FAERS Safety Report 6755300 (Version 1)
Quarter: 2020Q3

REPORT INFORMATION
  Report Type: Spontaneous
  Country: DE (occurrence: DE)
  Receive Date: 20080912
  Receipt Date: 20080912
  Transmission Date: 20201104
  Serious: Yes (Other)
  Sender: FDA-Public Use
  Company Number: DE-ROCHE-472574

PATIENT
  Age: 57 Year
  Sex: Female

DRUGS (1)
  1. IBANDRONIC ACID. [Suspect]
     Active Substance: IBANDRONIC ACID
     Dosage: FORM REPORTED AS INFUSION. RECEIVED EVERY FOUR WEEKS.
     Route: 042
     Dates: start: 200607

REACTIONS (5)
  - Burning sensation [Unknown]
  - Pain [Not Recovered/Not Resolved]
  - Rib excision [Unknown]
  - Procedural site reaction [None]
  - Bone swelling [Unknown]

NARRATIVE: CASE EVENT DATE: 20080422
